FAERS Safety Report 17787707 (Version 6)
Quarter: 2021Q1

REPORT INFORMATION
  Report Type: Spontaneous
  Country: CN (occurrence: CN)
  Receive Date: 20200514
  Receipt Date: 20210112
  Transmission Date: 20210419
  Serious: Yes (Hospitalization)
  Sender: FDA-Public Use
  Company Number: CN-CELGENEUS-CHN-20200502935

PATIENT
  Age: 46 Year
  Sex: Male
  Weight: 85 kg

DRUGS (22)
  1. ABRAXANE [Suspect]
     Active Substance: PACLITAXEL
     Dosage: 192 MILLIGRAM
     Route: 041
     Dates: start: 20191225, end: 20191225
  2. ABRAXANE [Suspect]
     Active Substance: PACLITAXEL
     Dosage: 188 MILLIGRAM
     Route: 041
     Dates: start: 20200110, end: 20200110
  3. ABRAXANE [Suspect]
     Active Substance: PACLITAXEL
     Indication: NON-SMALL CELL LUNG CANCER
     Dosage: 189 MILLIGRAM
     Route: 041
     Dates: start: 20191218, end: 20191218
  4. DEXAMETHASONE SODIUM PHOSPHATE. [Concomitant]
     Active Substance: DEXAMETHASONE SODIUM PHOSPHATE
     Indication: PROPHYLAXIS OF NAUSEA AND VOMITING
     Route: 041
     Dates: start: 20200514, end: 20200514
  5. ABRAXANE [Suspect]
     Active Substance: PACLITAXEL
     Dosage: 189 MILLIGRAM
     Route: 041
     Dates: start: 20200102, end: 20200102
  6. ABRAXANE [Suspect]
     Active Substance: PACLITAXEL
     Dosage: 146 MILLIGRAM
     Route: 041
     Dates: start: 20200514, end: 20200514
  7. CARBOPLATIN. [Suspect]
     Active Substance: CARBOPLATIN
     Dosage: 562.5 MILLIGRAM
     Route: 041
     Dates: start: 20200514, end: 20200514
  8. SERPLULIMAB. [Suspect]
     Active Substance: SERPLULIMAB
     Route: 041
     Dates: start: 20200514, end: 20200514
  9. CARBOPLATIN. [Suspect]
     Active Substance: CARBOPLATIN
     Dosage: 549 MILLIGRAM
     Route: 041
     Dates: start: 20200110, end: 20200110
  10. RECOMBINANT HUMAN GRANULOCYTE COLONY STIMULATING FACTOR [Concomitant]
     Active Substance: GRANULOCYTE COLONY-STIMULATING FACTOR NOS
     Indication: NEUTROPHIL COUNT INCREASED
     Route: 058
     Dates: start: 20200513, end: 20200513
  11. TROPISETRON HYDROCHLORIDE [Concomitant]
     Active Substance: TROPISETRON HYDROCHLORIDE
     Indication: PROPHYLAXIS OF NAUSEA AND VOMITING
     Route: 041
     Dates: start: 20200514, end: 20200514
  12. ABRAXANE [Suspect]
     Active Substance: PACLITAXEL
     Dosage: 142.5 MILLIGRAM
     Route: 041
     Dates: start: 20200117, end: 20200117
  13. REDUCED GLUTATHIONE [Concomitant]
     Indication: PROPHYLAXIS
     Dosage: 1.2 GRAM
     Route: 041
     Dates: start: 20200425, end: 20200430
  14. REDUCED GLUTATHIONE [Concomitant]
     Dosage: 1.8 GRAM
     Route: 041
     Dates: start: 20200430, end: 20200507
  15. BICYCLOL [Concomitant]
     Active Substance: BICYCLOL
     Indication: PROPHYLAXIS
     Dosage: 150 MILLIGRAM
     Route: 048
     Dates: start: 20200426
  16. SERPLULIMAB. [Suspect]
     Active Substance: SERPLULIMAB
     Dosage: 364.5 MILLIGRAM
     Route: 041
     Dates: start: 20200110, end: 20200110
  17. PANTOPRAZOLE SODIUM. [Concomitant]
     Active Substance: PANTOPRAZOLE SODIUM
     Indication: PROPHYLAXIS OF NAUSEA AND VOMITING
     Route: 041
     Dates: start: 20200514, end: 20200514
  18. GEMCITABINE. [Concomitant]
     Active Substance: GEMCITABINE
     Indication: CHEMOTHERAPY
     Route: 065
     Dates: start: 20200715
  19. CARBOPLATIN. [Suspect]
     Active Substance: CARBOPLATIN
     Indication: NON-SMALL CELL LUNG CANCER
     Dosage: 750 MILLIGRAM
     Route: 041
     Dates: start: 20191218, end: 20191218
  20. SERPLULIMAB. [Suspect]
     Active Substance: SERPLULIMAB
     Indication: NON-SMALL CELL LUNG CANCER
     Dosage: 364.5 MILLIGRAM
     Route: 041
     Dates: start: 20191218, end: 20191218
  21. COENZYME Q10 [Concomitant]
     Active Substance: DIETARY SUPPLEMENT\UBIDECARENONE
     Indication: CARDIOMYOPATHY
     Dosage: 5 MILLIGRAM
     Route: 048
     Dates: start: 20200424
  22. MAGNESIUM ISOGLYCYRRHIZINATE [Concomitant]
     Active Substance: MAGNESIUM ISOGLYCYRRHIZINATE
     Indication: PROPHYLAXIS
     Dosage: 150 MILLIGRAM
     Route: 041
     Dates: start: 20200426, end: 20200514

REACTIONS (1)
  - Cardiotoxicity [Recovered/Resolved]

NARRATIVE: CASE EVENT DATE: 20200424
